FAERS Safety Report 8501790-9 (Version None)
Quarter: 2012Q3

REPORT INFORMATION
  Report Type: 
  Country: None (occurrence: None)
  Receive Date: 20120705
  Receipt Date: 20120705
  Transmission Date: 20120928
  Serious: Yes (Hospitalization)
  Sender: FDA-Public Use
  Company Number: None

PATIENT
  Age: 70 Year
  Sex: Female

DRUGS (16)
  1. LISINOPRIL [Concomitant]
  2. PREGABALIN [Concomitant]
  3. TRAMADOL HCL [Concomitant]
  4. CALCIUM CARBONATE [Concomitant]
  5. LORAZEPAM [Concomitant]
  6. MELOXICAM [Concomitant]
  7. VICODIN [Concomitant]
  8. PREVACID [Concomitant]
  9. TRAZODONE HCL [Concomitant]
  10. HYDROCHLOROTHIAZIDE [Suspect]
     Indication: HYPERTENSION
     Dosage: 12.5 MG DAILY PO
     Route: 048
  11. CLARINEX [Concomitant]
  12. GABAPENTIN [Concomitant]
  13. SERTRALINE HYDROCHLORIDE [Concomitant]
  14. PREMARIN [Concomitant]
  15. GLUCOSAMINE [Concomitant]
  16. METAXALONE [Concomitant]

REACTIONS (1)
  - SYNCOPE [None]
